FAERS Safety Report 6747879-6 (Version None)
Quarter: 2010Q2

REPORT INFORMATION
  Report Type: 
  Country: None (occurrence: None)
  Receive Date: 20100528
  Receipt Date: 20100524
  Transmission Date: 20101027
  Serious: Yes (Hospitalization)
  Sender: FDA-Public Use
  Company Number: PHHO2010US07167

PATIENT
  Sex: Male
  Weight: 65.9 kg

DRUGS (5)
  1. AFINITOR [Suspect]
     Indication: CARCINOID TUMOUR
     Dosage: DOUBLE BLIND
     Route: 048
     Dates: start: 20080218
  2. BLINDED NO TREATMENT RECEIVED NOMED [Suspect]
     Indication: CARCINOID TUMOUR
     Dosage: DOUBLE BLIND
     Route: 048
     Dates: start: 20080218
  3. BLINDED PLACEBO COMP-PLA+ [Suspect]
     Indication: CARCINOID TUMOUR
     Dosage: DOUBLE BLIND
     Route: 048
     Dates: start: 20080218
  4. RAD001 [Suspect]
     Indication: CARCINOID TUMOUR
     Dosage: 10 MG DAILY
     Route: 048
     Dates: end: 20100504
  5. SANDOSTATIN LAR [Concomitant]
     Indication: CARCINOID TUMOUR

REACTIONS (6)
  - EXTRINSIC VASCULAR COMPRESSION [None]
  - FALL [None]
  - ILIAC VEIN OCCLUSION [None]
  - INFERIOR VENA CAVAL OCCLUSION [None]
  - OEDEMA PERIPHERAL [None]
  - URTICARIA [None]
